FAERS Safety Report 15515178 (Version 1)
Quarter: 2018Q4

REPORT INFORMATION
  Report Type: Spontaneous
  Country: PL (occurrence: PL)
  Receive Date: 20181017
  Receipt Date: 20181017
  Transmission Date: 20190205
  Serious: Yes (Other)
  Sender: FDA-Public Use
  Company Number: PL-TEVA-2018-PL-964358

PATIENT
  Sex: Female

DRUGS (1)
  1. SUMAMED FORTE [Suspect]
     Active Substance: AZITHROMYCIN ANHYDROUS
     Indication: SINUS DISORDER
     Route: 065

REACTIONS (11)
  - Malaise [Unknown]
  - Salivary hypersecretion [Unknown]
  - Fungal oesophagitis [Unknown]
  - Somnolence [Unknown]
  - Asthenia [Unknown]
  - Dysphagia [Unknown]
  - Cardiac murmur [Unknown]
  - Fungal pharyngitis [Unknown]
  - Enterocolitis fungal [Unknown]
  - Decreased appetite [Unknown]
  - Oral fungal infection [Unknown]
